FAERS Safety Report 9244464 (Version 1)
Quarter: 2013Q1

REPORT INFORMATION
  Report Type: Spontaneous
  Country: US (occurrence: None)
  Receive Date: 20121128
  Receipt Date: 20121128
  Transmission Date: 20140127
  Serious: Yes (Other)
  Sender: FDA-Public Use
  Company Number: 2012032604

PATIENT
  Age: 66 Year
  Sex: Male
  Weight: 111 kg

DRUGS (20)
  1. ALBUMINAR [Suspect]
     Indication: HYPOTENSION
     Dates: start: 20120309, end: 20120309
  2. DOPAMINE [Concomitant]
  3. NEOSYNEPHRINE (PHENYLEPHRINE HYDROCHLORIDE) [Concomitant]
  4. EPINEPHRINE (EPINEPHRINE) [Concomitant]
  5. PROPOFOL [Concomitant]
  6. INSULIN [Concomitant]
  7. CEFAZOLIN [Concomitant]
  8. MORPHINE [Concomitant]
  9. POTASSIUM CHLORIDE [Concomitant]
  10. MAGNESIUM SULFATE (MAGNESIUM SULFATE) [Concomitant]
  11. PHENYLEPHRINE (PHENYLEPHRINE) [Concomitant]
  12. NORMAL SAILNE (SODIUM CHLORIDE) [Concomitant]
  13. ASPIRIN (ACTYLSALICYLIC ACID) [Concomitant]
  14. SUCRALFATE (SUCRALFATE) UNKNOWN [Concomitant]
  15. DOCUSATE (DOCUSATE) [Concomitant]
  16. CALCIUM CHLORIDE (CALCIUM CHLORIDE DIHYDRATE) [Concomitant]
  17. FUROSEMIDE [Concomitant]
  18. HYDROMORPHONE [Concomitant]
  19. LISINOPRIL [Concomitant]
  20. LOSARTAN (LOSARTAN) [Concomitant]

REACTIONS (1)
  - Hypotension [None]
